FAERS Safety Report 5263717-5 (Version None)
Quarter: 2007Q1

REPORT INFORMATION
  Report Type: 
  Country: None (occurrence: None)
  Receive Date: 20061213
  Receipt Date: 20040603
  Transmission Date: 20070707
  Serious: No
  Sender: FDA-Public Use
  Company Number: 2004UW11597

PATIENT
  Age: 60 Year
  Sex: Female
  Weight: 85.7298 kg

DRUGS (5)
  1. IRESSA [Suspect]
     Indication: NON-SMALL CELL LUNG CANCER
     Dates: start: 20031101, end: 20040501
  2. TOPROL-XL [Concomitant]
  3. XOPENEX [Concomitant]
  4. LASIX [Concomitant]
  5. XANAX [Concomitant]

REACTIONS (1)
  - METASTASES TO ADRENALS [None]
